FAERS Safety Report 7921373-9 (Version None)
Quarter: 2011Q4

REPORT INFORMATION
  Report Type: 
  Country: None (occurrence: None)
  Receive Date: 20111117
  Receipt Date: 20111116
  Transmission Date: 20120403
  Serious: Yes (Other)
  Sender: FDA-Public Use
  Company Number: CA-PFIZER INC-2011280980

PATIENT
  Sex: Female

DRUGS (1)
  1. VARENICLINE TARTRATE [Suspect]
     Dosage: UNK
     Dates: start: 20111101

REACTIONS (6)
  - DYSSTASIA [None]
  - AMNESIA [None]
  - CHEST PAIN [None]
  - NAUSEA [None]
  - DEPRESSED MOOD [None]
  - COLD SWEAT [None]
